FAERS Safety Report 13100462 (Version 1)
Quarter: 2017Q1

REPORT INFORMATION
  Report Type: Spontaneous
  Country: US (occurrence: US)
  Receive Date: 20170109
  Receipt Date: 20170109
  Transmission Date: 20170428
  Serious: Yes (Other)
  Sender: FDA-Public Use
  Company Number: None

PATIENT
  Age: 70 Year
  Sex: Male
  Weight: 74.25 kg

DRUGS (3)
  1. TAMSULOSIN [Suspect]
     Active Substance: TAMSULOSIN
     Indication: POLLAKIURIA
     Route: 048
     Dates: start: 20160801, end: 20161212
  2. CHEMO [Concomitant]
     Active Substance: UNSPECIFIED INGREDIENT
  3. PAIN KILLER [Concomitant]

REACTIONS (1)
  - Painful erection [None]

NARRATIVE: CASE EVENT DATE: 20160801
